FAERS Safety Report 16212958 (Version 1)
Quarter: 2019Q2

REPORT INFORMATION
  Report Type: Spontaneous
  Country: US (occurrence: US)
  Receive Date: 20190418
  Receipt Date: 20190418
  Transmission Date: 20190711
  Serious: No
  Sender: FDA-Public Use
  Company Number: US-ASTRAZENECA-2019SE49624

PATIENT
  Age: 65 Year
  Sex: Female

DRUGS (15)
  1. VITAMIN D2 [Concomitant]
     Active Substance: ERGOCALCIFEROL
     Indication: BONE DISORDER
     Route: 048
     Dates: start: 201706
  2. FOLATE [Concomitant]
     Active Substance: FOLATE SODIUM
     Indication: SUPPLEMENTATION THERAPY
     Route: 048
     Dates: start: 2017
  3. BIOTIN [Concomitant]
     Active Substance: BIOTIN
     Indication: GENERAL SYMPTOM
     Route: 048
     Dates: start: 2017
  4. VITAMIN B12 [Concomitant]
     Active Substance: CYANOCOBALAMIN
     Indication: SUPPLEMENTATION THERAPY
     Route: 048
     Dates: start: 2018
  5. LISINOPRIL. [Suspect]
     Active Substance: LISINOPRIL
     Indication: HYPERTENSION
     Route: 048
  6. CALCIUM CITRATE [Concomitant]
     Active Substance: CALCIUM CITRATE
     Indication: OSTEOPOROSIS
     Route: 048
     Dates: start: 201706
  7. JANUVIA [Concomitant]
     Active Substance: SITAGLIPTIN PHOSPHATE
     Indication: TYPE 2 DIABETES MELLITUS
     Route: 048
     Dates: start: 201801
  8. CARVEDILOL. [Concomitant]
     Active Substance: CARVEDILOL
     Indication: CARDIAC DISORDER
     Route: 048
  9. AMLODIPINE BESYLATE. [Concomitant]
     Active Substance: AMLODIPINE BESYLATE
     Indication: HYPERTENSION
     Route: 048
     Dates: start: 201706
  10. BYETTA [Suspect]
     Active Substance: EXENATIDE
     Indication: TYPE 2 DIABETES MELLITUS
     Route: 058
     Dates: start: 201809
  11. GLIPIZIDE. [Concomitant]
     Active Substance: GLIPIZIDE
     Indication: TYPE 2 DIABETES MELLITUS
     Route: 048
  12. MONTELUKAST SODIUM. [Concomitant]
     Active Substance: MONTELUKAST SODIUM
     Indication: MULTIPLE ALLERGIES
     Route: 048
     Dates: start: 2017
  13. LEVOTHYROXINE. [Concomitant]
     Active Substance: LEVOTHYROXINE
     Indication: THYROID DISORDER
     Route: 048
  14. ASPIRIN. [Concomitant]
     Active Substance: ASPIRIN
     Indication: DISCOMFORT
     Route: 048
  15. LOVASTATIN. [Concomitant]
     Active Substance: LOVASTATIN
     Indication: BLOOD CHOLESTEROL
     Route: 048

REACTIONS (11)
  - Blood glucose abnormal [Unknown]
  - Cardiac failure congestive [Unknown]
  - Fall [Unknown]
  - Arthralgia [Unknown]
  - Hepatitis B [Unknown]
  - Folate deficiency [Unknown]
  - Crohn^s disease [Unknown]
  - Osteoporosis [Unknown]
  - Device issue [Unknown]
  - Arthritis [Unknown]
  - Product dose omission [Unknown]

NARRATIVE: CASE EVENT DATE: 2004
